FAERS Safety Report 16723542 (Version 1)
Quarter: 2019Q3

REPORT INFORMATION
  Report Type: Spontaneous
  Country: CA (occurrence: CA)
  Receive Date: 20190821
  Receipt Date: 20190821
  Transmission Date: 20191005
  Serious: Yes (Other)
  Sender: FDA-Public Use
  Company Number: CA-TEVA-2019-CA-1093070

PATIENT
  Sex: Female

DRUGS (1)
  1. TEVA-ALENDRONATE [Suspect]
     Active Substance: ALENDRONATE SODIUM
     Dosage: SINCE 10 TO 15 YEARS AGO, WEEKLY ONCE
     Route: 048
     Dates: start: 2018, end: 201905

REACTIONS (3)
  - Walking disability [Unknown]
  - Femur fracture [Unknown]
  - Pain in extremity [Unknown]

NARRATIVE: CASE EVENT DATE: 2018
